FAERS Safety Report 23105573 (Version 1)
Quarter: 2023Q4

REPORT INFORMATION
  Report Type: Spontaneous
  Country: US (occurrence: None)
  Receive Date: 20231023
  Receipt Date: 20231023
  Transmission Date: 20240110
  Serious: Yes (Hospitalization)
  Sender: FDA-Public Use
  Company Number: None

PATIENT
  Age: 78 Year
  Sex: Male

DRUGS (1)
  1. OMEPRAZOLE [Suspect]
     Active Substance: OMEPRAZOLE
     Dosage: FREQUENCY : TWICE A DAY;?
     Route: 048
     Dates: start: 20221208, end: 20230128

REACTIONS (1)
  - Nephritis [None]

NARRATIVE: CASE EVENT DATE: 20230126
